FAERS Safety Report 8367863-9 (Version None)
Quarter: 2012Q1

REPORT INFORMATION
  Report Type: 
  Country: None (occurrence: None)
  Receive Date: 20120323
  Receipt Date: 20110727
  Transmission Date: 20120608
  Serious: Yes (Hospitalization)
  Sender: FDA-Public Use
  Company Number: 163-21880-11080107

PATIENT
  Age: 82 Year
  Sex: Female
  Weight: 48.9885 kg

DRUGS (6)
  1. REVLIMID [Suspect]
     Indication: MULTIPLE MYELOMA
     Dosage: 15 MG, QD X 21 DAYS, PO
     Route: 048
     Dates: start: 20070101, end: 20100101
  2. CELEXA [Concomitant]
  3. RISPERADONE (RISPERIDONE) [Concomitant]
  4. DEXAMETHASONE [Concomitant]
  5. FOLNATE (FOLIC ACID) [Concomitant]
  6. VITAMIN B12 [Concomitant]

REACTIONS (1)
  - ANAEMIA [None]
